FAERS Safety Report 8122514-3 (Version None)
Quarter: 2012Q1

REPORT INFORMATION
  Report Type: 
  Country: None (occurrence: None)
  Receive Date: 20120208
  Receipt Date: 20120131
  Transmission Date: 20120608
  Serious: Yes (Hospitalization)
  Sender: FDA-Public Use
  Company Number: US-BAYER-2012-011305

PATIENT
  Age: 23 Year
  Sex: Female
  Weight: 82 kg

DRUGS (2)
  1. YASMIN [Suspect]
     Indication: ORAL CONTRACEPTION
     Dosage: UNK
     Dates: start: 20051201, end: 20061101
  2. YASMIN [Suspect]
     Indication: PREMENSTRUAL SYNDROME

REACTIONS (6)
  - PULMONARY EMBOLISM [None]
  - HEART RATE IRREGULAR [None]
  - DYSPNOEA [None]
  - MIGRAINE [None]
  - CARDIAC DISORDER [None]
  - CHEST PAIN [None]
